FAERS Safety Report 8479753-1 (Version None)
Quarter: 2012Q2

REPORT INFORMATION
  Report Type: 
  Country: None (occurrence: None)
  Receive Date: 20120620
  Receipt Date: 20120613
  Transmission Date: 20120825
  Serious: Yes (Hospitalization, Disabling)
  Sender: FDA-Public Use
  Company Number: WAES 1010USA03233

PATIENT
  Age: 90 Year
  Sex: Female

DRUGS (8)
  1. LASIX [Concomitant]
  2. ACTOS [Suspect]
     Indication: TYPE 2 DIABETES MELLITUS
     Dosage: 30 MG/DAILY/PO
     Route: 048
     Dates: end: 20100928
  3. METFORMIN [Suspect]
     Indication: TYPE 2 DIABETES MELLITUS
     Dosage: 25C MG/DAILY/PO
     Route: 048
     Dates: end: 20100928
  4. BAYMYCARD [Concomitant]
  5. LIPITOR [Concomitant]
  6. TAB JANUVIA (SILAGLIPTIN PHOSPHATE) [Suspect]
     Indication: TYPE 2 DIABETES MELLITUS
     Dosage: 50 MG/DAILY/PO
     Route: 048
     Dates: start: 20100917, end: 20100928
  7. AMARYL [Suspect]
     Indication: TYPE 2 DIABETES MELLITUS
     Dosage: 3 MG/DAILY/PO
     Route: 048
     Dates: end: 20100928
  8. EC DOPARL [Concomitant]

REACTIONS (2)
  - HYPOGLYCAEMIC UNCONSCIOUSNESS [None]
  - HYPOGLYCAEMIA [None]
